FAERS Safety Report 18665748 (Version 1)
Quarter: 2020Q4

REPORT INFORMATION
  Report Type: Spontaneous
  Country: GB (occurrence: GB)
  Receive Date: 20201226
  Receipt Date: 20201226
  Transmission Date: 20210114
  Serious: Yes (Hospitalization)
  Sender: FDA-Public Use
  Company Number: GB-ACCORD-212125

PATIENT
  Age: 49 Year
  Sex: Female

DRUGS (10)
  1. LERCANIDIPINE [Concomitant]
     Active Substance: LERCANIDIPINE
  2. MACROGOL/MACROGOL STEARATE [Concomitant]
     Active Substance: POLYETHYLENE GLYCOLS
  3. SERTRALINE [Suspect]
     Active Substance: SERTRALINE HYDROCHLORIDE
     Indication: DEPRESSION
     Dosage: INITIALLY 100 MG ONCE A DAY THEN REDUCED TO 75 MG ONCE A DAY
     Route: 048
     Dates: end: 20201129
  4. MIRTAZAPINE. [Concomitant]
     Active Substance: MIRTAZAPINE
  5. DOCUSATE [Concomitant]
     Active Substance: DOCUSATE
  6. RAMIPRIL. [Concomitant]
     Active Substance: RAMIPRIL
  7. DIAZEPAM. [Concomitant]
     Active Substance: DIAZEPAM
  8. PROCYCLIDINE HYDROCHLORIDE [Concomitant]
     Active Substance: PROCYCLIDINE HYDROCHLORIDE
  9. LANSOPRAZOLE. [Concomitant]
     Active Substance: LANSOPRAZOLE
  10. HALOPERIDOL. [Concomitant]
     Active Substance: HALOPERIDOL

REACTIONS (4)
  - Tremor [Unknown]
  - Musculoskeletal stiffness [Unknown]
  - General physical health deterioration [Unknown]
  - Serotonin syndrome [Recovered/Resolved]

NARRATIVE: CASE EVENT DATE: 20201129
